FAERS Safety Report 10182699 (Version 1)
Quarter: 2014Q2

REPORT INFORMATION
  Report Type: Spontaneous
  Country: US (occurrence: None)
  Receive Date: 20140516
  Receipt Date: 20140516
  Transmission Date: 20141212
  Serious: Yes (Hospitalization)
  Sender: FDA-Public Use
  Company Number: UTC-047296

PATIENT
  Age: 45 Year
  Sex: Female
  Weight: 77.1 kg

DRUGS (3)
  1. REMODULIN [Suspect]
     Indication: COR PULMONALE CHRONIC
     Dosage: 0.028 UG/KG/MIN, SUBCUTANEOUS
     Route: 058
     Dates: start: 20131209
  2. REVATIO (SILDENAFIL CITRATE) [Concomitant]
  3. LETAIRIS (AMBRISENTAN) [Concomitant]

REACTIONS (11)
  - Infusion site extravasation [None]
  - Infusion site pain [None]
  - Infusion site erythema [None]
  - Infusion site swelling [None]
  - Chest discomfort [None]
  - Infusion site scab [None]
  - Injection site discharge [None]
  - Infusion site mass [None]
  - Pyrexia [None]
  - Chills [None]
  - Malaise [None]
